FAERS Safety Report 6895181-4 (Version None)
Quarter: 2010Q3

REPORT INFORMATION
  Report Type: 
  Country: None (occurrence: None)
  Receive Date: 20100802
  Receipt Date: 20100728
  Transmission Date: 20110219
  Serious: Yes (Death)
  Sender: FDA-Public Use
  Company Number: US-JNJCH-2009031626

PATIENT
  Age: 18 Month
  Sex: Female

DRUGS (2)
  1. ASPIRIN [Suspect]
     Indication: PYREXIA
     Dosage: TEXT:81MG EVERY 2HR; UNKNOWN DOSE EVERY 4HR
     Route: 048
  2. DIMETAPP [Suspect]
     Indication: PYREXIA
     Dosage: TEXT:UNKNOWN
     Route: 048

REACTIONS (2)
  - THERAPEUTIC AGENT TOXICITY [None]
  - WRONG DRUG ADMINISTERED [None]
